FAERS Safety Report 5948011-9 (Version None)
Quarter: 2008Q4

REPORT INFORMATION
  Report Type: 
  Country: None (occurrence: None)
  Receive Date: 20081110
  Receipt Date: 20081110
  Transmission Date: 20090506
  Serious: Yes (Other)
  Sender: FDA-Public Use
  Company Number: None

PATIENT
  Age: 39 Year
  Sex: Male
  Weight: 97.07 kg

DRUGS (1)
  1. PREGABALIN [Suspect]
     Indication: PAIN
     Dosage: 150 MG BID PO
     Route: 048
     Dates: start: 20081027

REACTIONS (2)
  - HALLUCINATION [None]
  - MUSCLE TWITCHING [None]
